FAERS Safety Report 7427677-0 (Version None)
Quarter: 2011Q1

REPORT INFORMATION
  Report Type: 
  Country: None (occurrence: None)
  Receive Date: 20110330
  Receipt Date: 20110324
  Transmission Date: 20110831
  Serious: Yes (Other)
  Sender: FDA-Public Use
  Company Number: 2011027994

PATIENT
  Age: 40 Year
  Sex: Female
  Weight: 49.8957 kg

DRUGS (6)
  1. VIVAGLOBIN [Suspect]
  2. NAPROSYN [Concomitant]
  3. VIVAGLOBIN [Suspect]
  4. FLONASE [Concomitant]
  5. VIVAGLOBIN [Suspect]
     Indication: IMMUNODEFICIENCY COMMON VARIABLE
     Dosage: SEE IMAGE
     Route: 058
     Dates: start: 20070115
  6. VIVAGLOBIN [Suspect]

REACTIONS (1)
  - PNEUMONIA [None]
